FAERS Safety Report 12374213 (Version 1)
Quarter: 2016Q2

REPORT INFORMATION
  Report Type: Spontaneous
  Country: US (occurrence: None)
  Receive Date: 20160516
  Receipt Date: 20160516
  Transmission Date: 20160815
  Serious: Yes (Life-Threatening, Other)
  Sender: FDA-Public Use
  Company Number: None

PATIENT
  Age: 46 Year
  Sex: Male
  Weight: 64.86 kg

DRUGS (5)
  1. DEPAKOTE [Concomitant]
     Active Substance: DIVALPROEX SODIUM
  2. LITHIUM. [Concomitant]
     Active Substance: LITHIUM
  3. VITAMIN D3 [Concomitant]
     Active Substance: CHOLECALCIFEROL
  4. DEXILANT [Suspect]
     Active Substance: DEXLANSOPRAZOLE
     Indication: GASTRIC DISORDER
     Route: 048
  5. BCOMPLEX [Concomitant]

REACTIONS (4)
  - Gastric disorder [None]
  - Haemorrhage [None]
  - Bone disorder [None]
  - Condition aggravated [None]

NARRATIVE: CASE EVENT DATE: 20140210
